FAERS Safety Report 5397725-0 (Version None)
Quarter: 2007Q3

REPORT INFORMATION
  Report Type: 
  Country: None (occurrence: None)
  Receive Date: 20070723
  Receipt Date: 20070723
  Transmission Date: 20080115
  Serious: Yes (Life-Threatening, Other)
  Sender: FDA-Public Use
  Company Number: None

PATIENT
  Age: 36 Year
  Sex: Female
  Weight: 72.5755 kg

DRUGS (2)
  1. BUPROPION HCL [Suspect]
     Indication: MAJOR DEPRESSION
     Dosage: 300MG ONCE DAILY PO
     Route: 048
     Dates: start: 20070713, end: 20070723
  2. BUPROPION HCL [Suspect]
     Indication: POSTPARTUM DEPRESSION
     Dosage: 300MG ONCE DAILY PO
     Route: 048
     Dates: start: 20070713, end: 20070723

REACTIONS (11)
  - DEPRESSION [None]
  - DIZZINESS [None]
  - DRUG INEFFECTIVE [None]
  - FATIGUE [None]
  - FOOD CRAVING [None]
  - IMPAIRED WORK ABILITY [None]
  - ORAL INTAKE REDUCED [None]
  - SELF-INJURIOUS IDEATION [None]
  - STOMACH DISCOMFORT [None]
  - THERAPEUTIC RESPONSE UNEXPECTED WITH DRUG SUBSTITUTION [None]
  - VIOLENCE-RELATED SYMPTOM [None]
